FAERS Safety Report 15898942 (Version 3)
Quarter: 2019Q2

REPORT INFORMATION
  Report Type: Spontaneous
  Country: US (occurrence: US)
  Receive Date: 20190201
  Receipt Date: 20190412
  Transmission Date: 20190711
  Serious: Yes (Other)
  Sender: FDA-Public Use
  Company Number: US-BIOGEN-2019BI00689754

PATIENT
  Sex: Female

DRUGS (2)
  1. TECFIDERA [Suspect]
     Active Substance: DIMETHYL FUMARATE
     Indication: MULTIPLE SCLEROSIS
     Dosage: MAINTENANCE DOSE
     Route: 050
     Dates: start: 201606
  2. TECFIDERA [Suspect]
     Active Substance: DIMETHYL FUMARATE
     Dosage: MAINTENANCE DOSE
     Route: 050
     Dates: start: 20160413

REACTIONS (15)
  - Tooth abscess [Unknown]
  - Inappropriate schedule of product administration [Unknown]
  - Optic neuritis [Not Recovered/Not Resolved]
  - Rash [Not Recovered/Not Resolved]
  - CSF test abnormal [Unknown]
  - Abdominal pain upper [Unknown]
  - Pruritus [Not Recovered/Not Resolved]
  - Dementia [Unknown]
  - Systemic lupus erythematosus [Unknown]
  - Vomiting [Unknown]
  - Dermal cyst [Unknown]
  - Spinal osteoarthritis [Unknown]
  - Fall [Recovered/Resolved]
  - Neuropathy peripheral [Unknown]
  - Scoliosis [Unknown]
